FAERS Safety Report 13312172 (Version 1)
Quarter: 2017Q1

REPORT INFORMATION
  Report Type: Spontaneous
  Country: None (occurrence: US)
  Receive Date: 20170309
  Receipt Date: 20170309
  Transmission Date: 20170428
  Serious: Yes (Hospitalization)
  Sender: FDA-Public Use
  Company Number: None

PATIENT
  Age: 75 Year
  Sex: Male
  Weight: 80.2 kg

DRUGS (1)
  1. LENALIDOMIDE (CC-5013) [Suspect]
     Active Substance: LENALIDOMIDE
     Dates: end: 20170301

REACTIONS (11)
  - Cardiac arrest [None]
  - Cough [None]
  - Sputum discoloured [None]
  - Cardiac failure congestive [None]
  - Sputum increased [None]
  - Night sweats [None]
  - Pulseless electrical activity [None]
  - Weight decreased [None]
  - Staphylococcus test positive [None]
  - Hypoxia [None]
  - Pyrexia [None]

NARRATIVE: CASE EVENT DATE: 20170302
